FAERS Safety Report 25384773 (Version 2)
Quarter: 2025Q2

REPORT INFORMATION
  Report Type: Spontaneous
  Country: US (occurrence: US)
  Receive Date: 20250602
  Receipt Date: 20250623
  Transmission Date: 20250716
  Serious: Yes (Hospitalization, Other)
  Sender: BAYER HEALTHCARE PHARMACEUTICALS INC.
  Company Number: US-BAYER-2025A070512

PATIENT
  Age: 31 Year
  Sex: Female

DRUGS (1)
  1. MIRENA [Suspect]
     Active Substance: LEVONORGESTREL
     Indication: Device dislocation
     Dosage: 20?G/DAY
     Route: 015
     Dates: start: 20240814

REACTIONS (2)
  - Heavy menstrual bleeding [Recovering/Resolving]
  - Device dislocation [Not Recovered/Not Resolved]
